FAERS Safety Report 6764506-2 (Version None)
Quarter: 2010Q2

REPORT INFORMATION
  Report Type: 
  Country: None (occurrence: None)
  Receive Date: 20100610
  Receipt Date: 20100528
  Transmission Date: 20101027
  Serious: Yes (Hospitalization)
  Sender: FDA-Public Use
  Company Number: PHFR2010GB00842

PATIENT
  Sex: Male

DRUGS (2)
  1. CARBAMAZEPINE [Suspect]
  2. DALACIN C                               /UNK/ [Concomitant]
     Dosage: 6 MG/KG, QID

REACTIONS (3)
  - OSTEOMYELITIS [None]
  - PYREXIA [None]
  - RASH [None]
